FAERS Safety Report 9311799 (Version 1)
Quarter: 2013Q1

REPORT INFORMATION
  Report Type: Spontaneous
  Country: AU (occurrence: None)
  Receive Date: 20130212
  Receipt Date: 20130212
  Transmission Date: 20140127
  Serious: Yes (Death)
  Sender: FDA-Public Use
  Company Number: 1301-131

PATIENT
  Sex: Female

DRUGS (1)
  1. EYLEA (AFLIBERCEPT) (AFLIBERCEPT) [Suspect]
     Indication: AGE-RELATED MACULAR DEGENERATION
     Dates: start: 201212

REACTIONS (3)
  - Ischaemic stroke [None]
  - Embolic stroke [None]
  - Haemorrhagic stroke [None]
